FAERS Safety Report 6077081-5 (Version None)
Quarter: 2009Q1

REPORT INFORMATION
  Report Type: 
  Country: None (occurrence: None)
  Receive Date: 20090210
  Receipt Date: 20090203
  Transmission Date: 20090719
  Serious: Yes (Hospitalization)
  Sender: FDA-Public Use
  Company Number: 2008SP026200

PATIENT
  Age: 46 Year
  Sex: Male
  Weight: 96 kg

DRUGS (2)
  1. PEG-INTRON [Suspect]
     Indication: HEPATITIS C
     Dosage: 120 MCG; QW; SC
     Route: 058
     Dates: start: 20080713, end: 20081019
  2. REBETOL [Suspect]
     Indication: HEPATITIS C
     Dosage: 1200 MG; QD;
     Dates: start: 20080713, end: 20081026

REACTIONS (1)
  - ACOUSTIC NEURITIS [None]
